FAERS Safety Report 9711751 (Version 2)
Quarter: 2013Q4

REPORT INFORMATION
  Report Type: Spontaneous
  Country: US (occurrence: US)
  Receive Date: 20131126
  Receipt Date: 20131126
  Transmission Date: 20140711
  Serious: No
  Sender: FDA-Public Use
  Company Number: US-BRISTOL-MYERS SQUIBB COMPANY-18800029

PATIENT
  Age: 65 Year
  Sex: Female
  Weight: 80.72 kg

DRUGS (3)
  1. BYDUREON [Suspect]
     Indication: TYPE 2 DIABETES MELLITUS
     Route: 058
     Dates: start: 20130305
  2. GLIMEPIRIDE [Suspect]
     Dosage: 1DF = 2.5MG MORNING, 3.5MG EVENING
     Route: 048
     Dates: start: 20130426
  3. LIPITOR [Concomitant]

REACTIONS (9)
  - Injection site mass [Not Recovered/Not Resolved]
  - Injection site pruritus [Recovered/Resolved]
  - Ear infection [Recovering/Resolving]
  - Blood glucose fluctuation [Not Recovered/Not Resolved]
  - Drug dose omission [Unknown]
  - Injection site haemorrhage [Unknown]
  - Injection site extravasation [Unknown]
  - Blood glucose increased [Unknown]
  - Oropharyngeal pain [Unknown]
